FAERS Safety Report 6234220-0 (Version None)
Quarter: 2009Q2

REPORT INFORMATION
  Report Type: 
  Country: None (occurrence: None)
  Receive Date: 20090618
  Receipt Date: 20090611
  Transmission Date: 20091009
  Serious: Yes (Other)
  Sender: FDA-Public Use
  Company Number: CN-JNJFOC-20090605188

PATIENT
  Age: 61 Year
  Sex: Male

DRUGS (2)
  1. LEVOFLOXACIN [Suspect]
     Indication: PROSTATITIS
     Route: 065
  2. DEXTROSE 5% [Concomitant]
     Indication: PROSTATITIS
     Route: 065

REACTIONS (4)
  - ABNORMAL BEHAVIOUR [None]
  - DYSPNOEA [None]
  - MENTAL DISORDER [None]
  - RESTLESSNESS [None]
